FAERS Safety Report 7734232-1 (Version None)
Quarter: 2011Q3

REPORT INFORMATION
  Report Type: 
  Country: None (occurrence: None)
  Receive Date: 20110901
  Receipt Date: 20110818
  Transmission Date: 20111222
  Serious: Yes (Hospitalization, Other)
  Sender: FDA-Public Use
  Company Number: AUR-APL-2011-04769

PATIENT
  Age: 25 Year
  Sex: Female

DRUGS (5)
  1. QUETIAPINE FUMARATE [Suspect]
     Indication: BIPOLAR II DISORDER
  2. LAMOTRIGINE [Suspect]
     Indication: BIPOLAR II DISORDER
     Dosage: 25 MG, 1 D
  3. ARIPIPRAZOLE [Suspect]
     Indication: BIPOLAR II DISORDER
     Dosage: 5 MG 1 D
  4. DIVALPROEX SODIUM [Suspect]
     Indication: BIPOLAR II DISORDER
     Dosage: 500 MG, AT BED TIME, ORAL; 1000 MG (500 MG, 2 IN 1 D), ORAL
     Route: 048
  5. ZIPRASIDONE HCL [Suspect]
     Indication: BIPOLAR II DISORDER

REACTIONS (16)
  - DEATH OF RELATIVE [None]
  - WEIGHT INCREASED [None]
  - BLOOD CHOLESTEROL INCREASED [None]
  - DRUG RASH WITH EOSINOPHILIA AND SYSTEMIC SYMPTOMS [None]
  - DRUG INTOLERANCE [None]
  - ANXIETY [None]
  - LOW DENSITY LIPOPROTEIN INCREASED [None]
  - NAUSEA [None]
  - GASTROENTERITIS [None]
  - MONONUCLEOSIS HETEROPHILE TEST POSITIVE [None]
  - COAGULOPATHY [None]
  - EXTRAPYRAMIDAL DISORDER [None]
  - BLOOD TRIGLYCERIDES INCREASED [None]
  - RASH [None]
  - VOMITING [None]
  - MULTI-ORGAN DISORDER [None]
